FAERS Safety Report 7445213-X (Version None)
Quarter: 2011Q2

REPORT INFORMATION
  Report Type: 
  Country: None (occurrence: None)
  Receive Date: 20110420
  Receipt Date: 20110408
  Transmission Date: 20111010
  Serious: Yes (Hospitalization, Other)
  Sender: FDA-Public Use
  Company Number: 1000019323

PATIENT
  Age: 94 Year
  Sex: Female

DRUGS (14)
  1. EUTHYROX N (LEVOTHYROXINE   SODIUM) (TABLETS) (LEVOTHYROXINE SODIUM) [Concomitant]
  2. 1 [Suspect]
     Dosage: 10 MG (10 MG,1 IN  D),ORAL, 5 MG (5 MG,1 IN 1 D),ORAL
     Route: 048
     Dates: start: 20101227, end: 20110125
  3. 1 [Suspect]
     Dosage: 10 MG (10 MG,1 IN  D),ORAL, 5 MG (5 MG,1 IN 1 D),ORAL
     Route: 048
     Dates: start: 20110126, end: 20110202
  4. TEMGESIC (BUPRENORPHINE)(TABLETS)(BUPRENORPHINE) [Concomitant]
  5. LASIX [Concomitant]
  6. FUROSEMIDE (FUROSEMTDE) (TABLETS) (FUROSEMIDE) [Concomitant]
  7. ASPIRIN CARDIO (ACETYLSALICYLIC ACID) (TABLETS) (ACETYLSALICYLIC ACID) [Concomitant]
  8. LASIX [Concomitant]
  9. MEMANTINE [Suspect]
     Dosage: 20 MG (10 MG, 2 IN 1 D),ORAL
     Route: 048
     Dates: start: 20101223, end: 20101226
  10. TORSEMIDE [Suspect]
     Dosage: 10 MG (10 MG,1 IN  D),ORAL,  25 MG (25 MQ,L IN	 D)
     Dates: start: 20101221
  11. TORSEMIDE [Suspect]
     Dosage: 10 MG (10 MG,1 IN  D),ORAL,  25 MG (25 MQ,L IN	 D)
     Dates: end: 20101220
  12. DAFALGAN (PARACETAMCL) (TABLETS) (PARACETAMOL) [Concomitant]
  13. CALCIPARINE [Concomitant]
  14. CEFUROXIME [Suspect]
     Dosage: 3000 MG (1500 MG,2 IN 1 D),INTRAVENOUS (NOTOHERWISE SPECIFIED)
     Route: 042
     Dates: start: 20101210, end: 20101213

REACTIONS (6)
  - FEMORAL NECK FRACTURE [None]
  - DRUG PRESCRIBING ERROR [None]
  - RENAL FAILURE ACUTE [None]
  - RASH ERYTHEMATOUS [None]
  - DERMATITIS ALLERGIC [None]
  - FLUID RETENTION [None]
